FAERS Safety Report 18501111 (Version 1)
Quarter: 2020Q4

REPORT INFORMATION
  Report Type: Spontaneous
  Country: US (occurrence: US)
  Receive Date: 20201113
  Receipt Date: 20201113
  Transmission Date: 20210114
  Serious: No
  Sender: FDA-Public Use
  Company Number: US-BAYER-2020-243997

PATIENT

DRUGS (2)
  1. SILDENAFIL. [Interacting]
     Active Substance: SILDENAFIL
     Dosage: UNK
  2. ADEMPAS [Suspect]
     Active Substance: RIOCIGUAT
     Dosage: UNK
     Dates: start: 20201105

REACTIONS (1)
  - Labelled drug-drug interaction medication error [None]

NARRATIVE: CASE EVENT DATE: 20201105
